FAERS Safety Report 9024256 (Version 3)
Quarter: 2013Q2

REPORT INFORMATION
  Report Type: Spontaneous
  Country: IT (occurrence: IT)
  Receive Date: 20130121
  Receipt Date: 20130423
  Transmission Date: 20140414
  Serious: Yes (Other)
  Sender: FDA-Public Use
  Company Number: PHHY2013IT004873

PATIENT
  Age: 63 Year
  Sex: Male

DRUGS (2)
  1. ZOMETA [Suspect]
     Indication: RENAL CANCER
     Dosage: 4 MG, MONTHLY
     Route: 042
     Dates: start: 20111001, end: 20120703
  2. SUTENT [Suspect]
     Indication: RENAL CANCER
     Dosage: 25 MG, UNK
     Route: 048
     Dates: start: 20070901

REACTIONS (2)
  - Osteonecrosis of jaw [Not Recovered/Not Resolved]
  - Exposed bone in jaw [Unknown]
